FAERS Safety Report 5205456-2 (Version None)
Quarter: 2006Q4

REPORT INFORMATION
  Report Type: 
  Country: None (occurrence: None)
  Receive Date: 20061027
  Receipt Date: 20060217
  Transmission Date: 20070319
  Serious: Yes (Other)
  Sender: FDA-Public Use
  Company Number: HQWYE166317MAR05

PATIENT
  Age: 60 Year
  Sex: Female
  Weight: 49.94 kg

DRUGS (4)
  1. PREMARIN [Suspect]
     Indication: DRUG USE FOR UNKNOWN INDICATION
     Dosage: UNSPECIFIED, ORAL
     Route: 048
     Dates: start: 19800101, end: 20010101
  2. CYCRIN [Suspect]
     Indication: HORMONE REPLACEMENT THERAPY
  3. NORVASC [Concomitant]
  4. NORVASC [Concomitant]

REACTIONS (1)
  - BREAST CANCER [None]
